FAERS Safety Report 12729569 (Version 2)
Quarter: 2016Q4

REPORT INFORMATION
  Report Type: Spontaneous
  Country: DE (occurrence: DE)
  Receive Date: 20160909
  Receipt Date: 20161014
  Transmission Date: 20170207
  Serious: Yes (Life-Threatening, Hospitalization)
  Sender: FDA-Public Use
  Company Number: DE-JNJFOC-20160904908

PATIENT
  Age: 65 Year
  Sex: Male
  Weight: 83 kg

DRUGS (7)
  1. GABAPENTIN. [Concomitant]
     Active Substance: GABAPENTIN
     Dosage: IN THE EVENING
     Route: 065
  2. TRIUMEQ [Suspect]
     Active Substance: ABACAVIR SULFATE\DOLUTEGRAVIR SODIUM\LAMIVUDINE
     Indication: HIV INFECTION
     Dosage: ONE IN THE EVENING
     Route: 065
     Dates: start: 20160805
  3. CANDESARTAN [Concomitant]
     Active Substance: CANDESARTAN
     Indication: HYPERTENSION
     Route: 065
     Dates: start: 20160624
  4. PRAVASTATIN AL [Concomitant]
     Dosage: HALF IN THE EVENING
     Route: 065
  5. IMIGRAN NOVUM [Concomitant]
     Indication: MIGRAINE
     Dosage: SINCE MORE THAN 10 YEARS
     Route: 065
  6. EDURANT [Suspect]
     Active Substance: RILPIVIRINE HYDROCHLORIDE
     Indication: HIV INFECTION
     Dosage: IN THE EVENING
     Route: 048
     Dates: start: 20160805
  7. GABAPENTIN AAA [Concomitant]
     Dosage: ONE IN THE MORNING AND ONE IN THE EVENING
     Route: 065

REACTIONS (1)
  - Embolic cerebral infarction [Not Recovered/Not Resolved]

NARRATIVE: CASE EVENT DATE: 20160830
